FAERS Safety Report 9290271 (Version 2)
Quarter: 2014Q3

REPORT INFORMATION
  Report Type: Spontaneous
  Country: FR (occurrence: FR)
  Receive Date: 20130515
  Receipt Date: 20140724
  Transmission Date: 20150326
  Serious: Yes (Hospitalization)
  Sender: FDA-Public Use
  Company Number: FR-BRISTOL-MYERS SQUIBB COMPANY-18873521

PATIENT
  Age: 83 Year
  Sex: Female

DRUGS (16)
  1. AERIUS [Concomitant]
     Active Substance: DESLORATADINE
  2. AMLODIPINE [Concomitant]
     Active Substance: AMLODIPINE BESYLATE
  3. OXYCONTIN [Concomitant]
     Active Substance: OXYCODONE HYDROCHLORIDE
     Dates: start: 201302
  4. INNOHEP [Concomitant]
     Active Substance: TINZAPARIN SODIUM
     Dates: start: 20130211
  5. FOLIC ACID. [Concomitant]
     Active Substance: FOLIC ACID
  6. DOMPERIDONE [Concomitant]
     Active Substance: DOMPERIDONE
  7. ATARAX [Concomitant]
     Active Substance: HYDROXYZINE\HYDROXYZINE HYDROCHLORIDE
  8. FORLAX [Concomitant]
     Active Substance: POLYETHYLENE GLYCOL 4000
  9. LEVOTHYROX [Concomitant]
     Active Substance: LEVOTHYROXINE
  10. GABAPENTINE [Concomitant]
     Active Substance: GABAPENTIN
     Dates: start: 201302
  11. OXYNORM [Concomitant]
     Active Substance: OXYCODONE HYDROCHLORIDE
     Dates: start: 201302
  12. FLECAINE [Suspect]
     Active Substance: FLECAINIDE
     Route: 048
     Dates: start: 1983
  13. EUPANTOL [Concomitant]
     Active Substance: PANTOPRAZOLE SODIUM
  14. HYDREA [Suspect]
     Active Substance: HYDROXYUREA
     Route: 048
     Dates: start: 1999, end: 201302
  15. SEROPLEX [Concomitant]
     Active Substance: ESCITALOPRAM OXALATE
  16. LOVENOX [Concomitant]
     Active Substance: ENOXAPARIN SODIUM
     Dates: start: 20130131

REACTIONS (1)
  - Interstitial lung disease [Recovered/Resolved]

NARRATIVE: CASE EVENT DATE: 20130306
